FAERS Safety Report 8786964 (Version 2)
Quarter: 2013Q4

REPORT INFORMATION
  Report Type: Spontaneous
  Country: SE (occurrence: SE)
  Receive Date: 20120914
  Receipt Date: 20131031
  Transmission Date: 20140711
  Serious: Yes (Death, Hospitalization)
  Sender: FDA-Public Use
  Company Number: SE-MERCK-1209SWE004428

PATIENT
  Age: 89 Year
  Sex: Male

DRUGS (2)
  1. ZOCORD 20 MG [Suspect]
     Dosage: 20 MG, DAILY
     Route: 048
     Dates: end: 20120502
  2. HERACILLIN [Suspect]
     Indication: INFECTION
     Dosage: 1.5 G, DAILY
     Route: 048
     Dates: start: 20120224, end: 20120305

REACTIONS (1)
  - Hepatic failure [Fatal]
